FAERS Safety Report 8112082-4 (Version None)
Quarter: 2012Q1

REPORT INFORMATION
  Report Type: 
  Country: None (occurrence: None)
  Receive Date: 20120203
  Receipt Date: 20120130
  Transmission Date: 20120608
  Serious: Yes (Other)
  Sender: FDA-Public Use
  Company Number: PT-PFIZER INC-2012011646

PATIENT
  Age: 65 Year
  Sex: Female

DRUGS (7)
  1. OMEPRAZOLE [Concomitant]
     Dosage: UNK
  2. LYRICA [Suspect]
     Dosage: 100 MG, 2X/DAY
     Route: 048
     Dates: end: 20111201
  3. CHOLIATRON [Concomitant]
     Dosage: UNK
  4. SEDOXIL [Concomitant]
     Indication: INSOMNIA
     Dosage: UNK
  5. CINET [Concomitant]
     Indication: VOMITING
     Dosage: UNK
  6. LYRICA [Suspect]
     Indication: PAIN
     Dosage: 75 MG, 2X/DAY
     Route: 048
  7. TRAMADOL HYDROCHLORIDE AND ACETAMINOPHEN [Concomitant]
     Indication: PAIN
     Dosage: UNK

REACTIONS (5)
  - SUFFOCATION FEELING [None]
  - PNEUMONIA [None]
  - DRUG INTERACTION [None]
  - ANXIETY [None]
  - PANIC REACTION [None]
